FAERS Safety Report 5978484-7 (Version None)
Quarter: 2008Q4

REPORT INFORMATION
  Report Type: 
  Country: None (occurrence: None)
  Receive Date: 20081204
  Receipt Date: 20070124
  Transmission Date: 20090506
  Serious: No
  Sender: FDA-Public Use
  Company Number: US-ABBOTT-07P-163-0357596-00

PATIENT
  Sex: Male
  Weight: 63.56 kg

DRUGS (1)
  1. ENDURON [Suspect]
     Indication: HYPERTENSION
     Route: 048
     Dates: start: 20060901

REACTIONS (1)
  - GOUT [None]
